FAERS Safety Report 9452848 (Version 1)
Quarter: 2013Q3

REPORT INFORMATION
  Report Type: Spontaneous
  Country: US (occurrence: US)
  Receive Date: 20130812
  Receipt Date: 20130812
  Transmission Date: 20140515
  Serious: Yes (Other)
  Sender: FDA-Public Use
  Company Number: US-SHIRE-ALL1-2013-05402

PATIENT
  Age: 22 Year
  Sex: Male
  Weight: 72.56 kg

DRUGS (2)
  1. VYVANSE [Suspect]
     Indication: ATTENTION DEFICIT/HYPERACTIVITY DISORDER
     Dosage: 40 MG, 1X/DAY:QD
     Route: 048
     Dates: start: 2012, end: 201306
  2. VYVANSE [Suspect]
     Dosage: UNK, UNKNOWN
     Route: 048
     Dates: start: 20130729

REACTIONS (15)
  - Substance-induced psychotic disorder [Recovered/Resolved]
  - Social avoidant behaviour [Recovered/Resolved]
  - Drug dependence [Not Recovered/Not Resolved]
  - Circadian rhythm sleep disorder [Not Recovered/Not Resolved]
  - Educational problem [Recovered/Resolved]
  - Intentional overdose [Recovered/Resolved]
  - Intentional drug misuse [Recovered/Resolved]
  - Sleep paralysis [Recovered/Resolved]
  - Tinnitus [Recovered/Resolved]
  - Eye swelling [Recovered/Resolved]
  - Ocular hyperaemia [Recovered/Resolved]
  - Photopsia [Unknown]
  - Anger [Recovered/Resolved]
  - Euphoric mood [Not Recovered/Not Resolved]
  - Aggression [Recovered/Resolved]
